FAERS Safety Report 6422761-2 (Version None)
Quarter: 2009Q4

REPORT INFORMATION
  Report Type: 
  Country: None (occurrence: None)
  Receive Date: 20091102
  Receipt Date: 20091027
  Transmission Date: 20100525
  Serious: Yes (Hospitalization)
  Sender: FDA-Public Use
  Company Number: US-BRISTOL-MYERS SQUIBB COMPANY-14834626

PATIENT
  Age: 34 Year
  Sex: Female
  Weight: 71 kg

DRUGS (7)
  1. CYTOXAN [Suspect]
     Indication: BREAST CANCER
     Dates: start: 20090826
  2. ADRIAMYCIN PFS [Suspect]
     Indication: BREAST CANCER
     Dosage: THIRD CYCLE STARTED ON 19-OCT-2009
     Dates: start: 20090826
  3. AMBIEN [Concomitant]
     Dates: start: 20090923
  4. KLONOPIN [Concomitant]
     Dates: start: 20090812
  5. INDOCIN [Concomitant]
     Dates: start: 20090812
  6. PERCOCET [Concomitant]
     Dates: start: 20090911
  7. ZOLOFT [Concomitant]
     Dates: start: 20090812

REACTIONS (1)
  - CELLULITIS [None]
